FAERS Safety Report 6879573-5 (Version None)
Quarter: 2010Q3

REPORT INFORMATION
  Report Type: 
  Country: None (occurrence: None)
  Receive Date: 20100728
  Receipt Date: 20100720
  Transmission Date: 20110219
  Serious: Yes (Other)
  Sender: FDA-Public Use
  Company Number: TW-PFIZER INC-2010091139

PATIENT
  Age: 43 Year
  Sex: Male

DRUGS (2)
  1. METHYLPREDNISOLONE SODIUM SUCCINATE [Suspect]
     Dosage: 30MG/KG BOLUS, THEN 5.4MG/KG/H
     Route: 042
  2. GABAPENTIN [Suspect]
     Indication: PAIN
     Dosage: 1200 MG/DAY

REACTIONS (2)
  - CHOREOATHETOSIS [None]
  - NEURALGIA [None]
